FAERS Safety Report 9416913 (Version 1)
Quarter: 2013Q3

REPORT INFORMATION
  Report Type: Spontaneous
  Country: US (occurrence: None)
  Receive Date: 20130722
  Receipt Date: 20130722
  Transmission Date: 20140515
  Serious: Yes (Hospitalization)
  Sender: FDA-Public Use
  Company Number: 2013-1159

PATIENT
  Age: 51 Year
  Sex: Male
  Weight: 96.2 kg

DRUGS (3)
  1. CARFILZOMIB (CARFILZOMIB) (20 MILLIGRAM(S)/SQ.METER, INJECTION FOR INFUSION) (CARFILZOMIB) [Suspect]
     Indication: PLASMA CELL MYELOMA
  2. LENALIDOMIDE [Concomitant]
  3. RITUXIMAB (RITUXIMAB) (375 MILLIGRAM(S)/SQ.METER) (RITUXIMAB) [Concomitant]

REACTIONS (7)
  - Dyspnoea [None]
  - Body temperature increased [None]
  - Weight increased [None]
  - Abdominal distension [None]
  - Lung infection [None]
  - Lymphadenopathy [None]
  - Embolism [None]
